FAERS Safety Report 17705785 (Version 8)
Quarter: 2020Q4

REPORT INFORMATION
  Report Type: Spontaneous
  Country: FR (occurrence: FR)
  Receive Date: 20200424
  Receipt Date: 20201019
  Transmission Date: 20210113
  Serious: Yes (Death, Hospitalization, Other)
  Sender: FDA-Public Use
  Company Number: NVSC2020FR109377

PATIENT
  Age: 11 Year
  Sex: Female

DRUGS (20)
  1. DEXAMETHASONE. [Suspect]
     Active Substance: DEXAMETHASONE
     Indication: ACUTE MYELOID LEUKAEMIA
     Dosage: ON DAY 1 AND DAY 7 (M4) OF FIRST LINE CHEMOTHERAPY
     Route: 037
  2. HYDROCORTISONE. [Suspect]
     Active Substance: HYDROCORTISONE
     Indication: ACUTE MYELOID LEUKAEMIA
     Dosage: DURING INDUCTION THERAPY
     Route: 037
  3. CYTARABINE. [Suspect]
     Active Substance: CYTARABINE
     Indication: CHEMOTHERAPY
     Dosage: UNK (ON DAY 1 OF FIRST LINE CHEMOTHERAPY (INDUCTION))
     Route: 065
  4. FLUDARABINE PHOSPHATE. [Suspect]
     Active Substance: FLUDARABINE PHOSPHATE
     Indication: ACUTE MYELOID LEUKAEMIA
  5. GEMTUZUMAB OZOGAMICIN [Suspect]
     Active Substance: GEMTUZUMAB OZOGAMICIN
     Indication: ACUTE MYELOID LEUKAEMIA REFRACTORY
     Dosage: 3 MG/M2 OVER 2 HOURS QD; ON DAY 1,4 AND 7 OF SECOND LINE CHEMOTHERAPY
     Route: 042
  6. METHOTREXATE. [Suspect]
     Active Substance: METHOTREXATE
     Indication: CHEMOTHERAPY
     Dosage: ON DAY 1 AND DAY 7 (M4) OF INDUCTION OF FIRST LINE CHEMOTHERAPY
     Route: 037
  7. MITOXANTRONE [Suspect]
     Active Substance: MITOXANTRONE HYDROCHLORIDE
     Indication: ACUTE MYELOID LEUKAEMIA
  8. BUSULFAN. [Concomitant]
     Active Substance: BUSULFAN
     Indication: BONE MARROW CONDITIONING REGIMEN
     Dosage: UNK
     Route: 065
  9. FLUDARABINE PHOSPHATE. [Suspect]
     Active Substance: FLUDARABINE PHOSPHATE
     Indication: SALVAGE THERAPY
  10. METHOTREXATE. [Suspect]
     Active Substance: METHOTREXATE
     Indication: ACUTE MYELOID LEUKAEMIA
  11. DEXAMETHASONE. [Suspect]
     Active Substance: DEXAMETHASONE
     Indication: CHEMOTHERAPY
  12. GEMTUZUMAB OZOGAMICIN [Suspect]
     Active Substance: GEMTUZUMAB OZOGAMICIN
     Indication: SALVAGE THERAPY
     Dosage: 2 X 3 MG/M2) DURING SUPPLEMENTARY COURSEUNK
     Route: 041
  13. AMSACRINE [Concomitant]
     Active Substance: AMSACRINE
     Indication: ACUTE MYELOID LEUKAEMIA
     Dosage: 100 MG/M2, QD (ON DAY 1,4 AND 7 OF CONSOLIDATION OF FIRST LINE CHEMOTHERAPY)
     Route: 065
  14. CYTARABINE. [Suspect]
     Active Substance: CYTARABINE
     Indication: ACUTE MYELOID LEUKAEMIA REFRACTORY
     Dosage: 2000 MG/M2  OVER 3 H QD; ON DAYS 1-5 OF SALVAGE THERAPY
     Route: 037
  15. CYTARABINE. [Suspect]
     Active Substance: CYTARABINE
     Indication: SALVAGE THERAPY
     Dosage: 200 MG/M2, QD (FIRST LINE CHEMOTHERAPY; CONTINOUS INJECTION)
     Route: 065
  16. CYTARABINE. [Suspect]
     Active Substance: CYTARABINE
     Indication: ACUTE MYELOID LEUKAEMIA
     Dosage: 3 G/M2, Q12H (ON CONSILIDATION DAY 1,4 AND 7 OF FIRST LINE CHEMOTHERAPY)
     Route: 065
  17. FLUDARABINE PHOSPHATE. [Suspect]
     Active Substance: FLUDARABINE PHOSPHATE
     Indication: ACUTE MYELOID LEUKAEMIA REFRACTORY
     Dosage: 30 MG/M2 OVER 30 MIN QD; ON DAY 1-5 OF SALVAGE THERAPY
     Route: 065
  18. GEMTUZUMAB OZOGAMICIN [Suspect]
     Active Substance: GEMTUZUMAB OZOGAMICIN
     Indication: ACUTE MYELOID LEUKAEMIA
     Dosage: ON DAYS 1, 4 AND 7
     Route: 050
  19. MITOXANTRONE [Suspect]
     Active Substance: MITOXANTRONE HYDROCHLORIDE
     Indication: CHEMOTHERAPY
     Dosage: 12 MG/M2, QD (ON DAY 1-5 OF FIRST LINE CHEMOTHERAPY INDUCTION)
     Route: 065
  20. AMSACRINE [Concomitant]
     Active Substance: AMSACRINE
     Indication: CHEMOTHERAPY
     Dosage: FOR 3 DAYS DURING CONSOLIDATION THERAPY
     Route: 065

REACTIONS (12)
  - Off label use [Unknown]
  - Febrile neutropenia [Unknown]
  - Sepsis [Unknown]
  - Product use in unapproved indication [Unknown]
  - Acute myeloid leukaemia recurrent [Fatal]
  - Staphylococcal infection [Unknown]
  - Enterococcal infection [Unknown]
  - Drug ineffective [Unknown]
  - Toxicity to various agents [Unknown]
  - Enterococcal sepsis [Unknown]
  - Drug resistance [Unknown]
  - Staphylococcal sepsis [Recovered/Resolved]
